FAERS Safety Report 21039587 (Version 1)
Quarter: 2022Q3

REPORT INFORMATION
  Report Type: Spontaneous
  Country: JP (occurrence: JP)
  Receive Date: 20220704
  Receipt Date: 20220704
  Transmission Date: 20221027
  Serious: Yes (Hospitalization)
  Sender: FDA-Public Use
  Company Number: JP-JNJFOC-A-CH2018-183124

PATIENT
  Age: 72 Year
  Sex: Female
  Weight: 48.8 kg

DRUGS (26)
  1. UPTRAVI [Suspect]
     Active Substance: SELEXIPAG
     Indication: Pulmonary arterial hypertension
     Dosage: 0.2 MG, BID
     Route: 048
     Dates: start: 20180417, end: 20180730
  2. UPTRAVI [Suspect]
     Active Substance: SELEXIPAG
     Dosage: 0.4 MG AM, 0.2 MG PM
     Route: 048
     Dates: start: 20180731, end: 20181001
  3. UPTRAVI [Suspect]
     Active Substance: SELEXIPAG
     Dosage: 0.4 MG, BID
     Route: 048
     Dates: start: 20181002, end: 20181111
  4. UPTRAVI [Suspect]
     Active Substance: SELEXIPAG
     Dosage: 0.6MG IN THE MORNING AND 0.4MG IN THE EVENING
     Route: 048
     Dates: start: 20181112, end: 20181216
  5. UPTRAVI [Suspect]
     Active Substance: SELEXIPAG
     Dosage: 0.8MG IN THE MORNING AND 0.6MG IN THE EVENING
     Route: 048
     Dates: start: 20181217, end: 20190106
  6. UPTRAVI [Suspect]
     Active Substance: SELEXIPAG
     Route: 048
     Dates: start: 20190107, end: 20190310
  7. UPTRAVI [Suspect]
     Active Substance: SELEXIPAG
     Dosage: 0.8MG IN THE MORNING AND 0.6MG IN THE EVENING
     Route: 048
     Dates: start: 20190311, end: 20190407
  8. UPTRAVI [Suspect]
     Active Substance: SELEXIPAG
     Route: 048
     Dates: start: 20190408, end: 20190512
  9. UPTRAVI [Suspect]
     Active Substance: SELEXIPAG
     Route: 048
     Dates: start: 20190513, end: 20190623
  10. UPTRAVI [Suspect]
     Active Substance: SELEXIPAG
     Route: 048
     Dates: start: 20190624, end: 20191006
  11. UPTRAVI [Suspect]
     Active Substance: SELEXIPAG
     Route: 048
     Dates: start: 20191007, end: 20200126
  12. UPTRAVI [Suspect]
     Active Substance: SELEXIPAG
     Route: 048
     Dates: start: 20200127, end: 20200209
  13. UPTRAVI [Suspect]
     Active Substance: SELEXIPAG
     Route: 048
     Dates: start: 20200210, end: 20200210
  14. UPTRAVI [Suspect]
     Active Substance: SELEXIPAG
     Route: 048
     Dates: start: 20200301
  15. UPTRAVI [Suspect]
     Active Substance: SELEXIPAG
     Route: 048
  16. OPSUMIT [Concomitant]
     Active Substance: MACITENTAN
     Indication: Pulmonary arterial hypertension
     Dosage: 10 MG, QD
  17. CRESTOR [Concomitant]
     Active Substance: ROSUVASTATIN CALCIUM
     Indication: Hyperlipidaemia
     Dosage: 25 MG, QD
  18. ONEALFA [Concomitant]
     Active Substance: ALFACALCIDOL
     Indication: Osteoporosis
     Dosage: 0.5 MCG, QD
  19. GASTER [Concomitant]
     Active Substance: FAMOTIDINE
     Indication: Gastritis
     Dosage: 20 MG, QD
  20. ASPIRIN [Concomitant]
     Active Substance: ASPIRIN
     Indication: Angina pectoris
     Dosage: 100 MG, QD
  21. PREDNISOLONE [Concomitant]
     Active Substance: PREDNISOLONE
     Dosage: 4 MG, QD
  22. PREDNISOLONE [Concomitant]
     Active Substance: PREDNISOLONE
  23. ALENDRONATE SODIUM [Concomitant]
     Active Substance: ALENDRONATE SODIUM
     Indication: Osteoporosis
     Dosage: 35 MG, QD
  24. ADEMPAS [Concomitant]
     Active Substance: RIOCIGUAT
     Indication: Pulmonary arterial hypertension
     Dosage: 4.5 MG, QD
  25. CARVEDILOL [Concomitant]
     Active Substance: CARVEDILOL
     Dosage: 25 MG, QD
  26. TORSEMIDE [Concomitant]
     Active Substance: TORSEMIDE
     Dates: start: 20181112

REACTIONS (2)
  - Urinary tract infection [Unknown]
  - Diarrhoea [Not Recovered/Not Resolved]

NARRATIVE: CASE EVENT DATE: 20180417
